FAERS Safety Report 6217071-2 (Version None)
Quarter: 2009Q2

REPORT INFORMATION
  Report Type: 
  Country: None (occurrence: None)
  Receive Date: 20090606
  Receipt Date: 20090526
  Transmission Date: 20091009
  Serious: Yes (Hospitalization)
  Sender: FDA-Public Use
  Company Number: FR-PFIZER INC-2009217814

PATIENT
  Age: 75 Year

DRUGS (9)
  1. ALDACTONE [Suspect]
     Route: 048
  2. PERINDOPRIL ERBUMINE [Suspect]
     Route: 048
  3. LASIX [Concomitant]
  4. ATACAND [Concomitant]
  5. DAONIL [Concomitant]
  6. CORVASAL [Concomitant]
  7. FENOFIBRATE [Concomitant]
  8. PREVISCAN [Concomitant]
  9. NOVOMIX [Concomitant]

REACTIONS (2)
  - HYPERKALAEMIA [None]
  - VENTRICULAR EXTRASYSTOLES [None]
